FAERS Safety Report 8623054-5 (Version None)
Quarter: 2012Q3

REPORT INFORMATION
  Report Type: 
  Country: None (occurrence: None)
  Receive Date: 20120827
  Receipt Date: 20120816
  Transmission Date: 20120928
  Serious: Yes (Hospitalization)
  Sender: FDA-Public Use
  Company Number: US-BAYER-2012-021308

PATIENT
  Age: 50 Year
  Sex: Female
  Weight: 77 kg

DRUGS (17)
  1. LAMICTAL [Concomitant]
     Indication: DIARRHOEA
  2. ZOFRAN [Concomitant]
     Indication: DIARRHOEA
  3. YASMIN [Suspect]
     Indication: DYSMENORRHOEA
     Dosage: UNK
     Dates: start: 20040928, end: 20090330
  4. LIPITOR [Concomitant]
     Dosage: 10 MG, DAILY
  5. PROAIR HFA [Concomitant]
     Indication: ASTHMA
     Dosage: 2 PUFFS EVERY FOUR TO SIX HOURS AS NEEDED
     Dates: start: 20090506, end: 20100327
  6. METRONIDAZOLE [Concomitant]
     Dosage: 500 MG, TID
  7. AMARYL [Concomitant]
     Indication: DIABETES MELLITUS
     Dosage: 2 MG, DAILY, FOR BLOOD SUGAR GREATER THAN 200
     Route: 048
     Dates: start: 20060410, end: 20100507
  8. DROSPIRENONE AND ETHINYL ESTRADIOL [Suspect]
     Indication: DYSMENORRHOEA
     Dosage: UNK
     Dates: start: 20080710, end: 20100409
  9. HYDROCHLOROTHIAZIDE [Concomitant]
     Dosage: UNK
     Dates: start: 20100201
  10. LISINOPRIL [Concomitant]
     Indication: HYPERTENSION
     Dosage: 10 MG, DAILY
     Dates: start: 20070423, end: 20100507
  11. SIMVASTATIN [Concomitant]
     Dosage: 10 MG, DAILY
     Dates: start: 20100201
  12. CHERATUSSIN AC [Concomitant]
  13. LAMICTAL [Concomitant]
     Indication: VOMITING
  14. ZOFRAN [Concomitant]
     Indication: VOMITING
  15. METFORMIN [Concomitant]
     Indication: DIABETES MELLITUS
     Dosage: 500 MG, BID
     Route: 048
     Dates: start: 20060410, end: 20100412
  16. PROAIR HFA [Concomitant]
     Indication: DYSPNOEA
  17. ONDANSETRON [Concomitant]
     Indication: NAUSEA
     Dosage: 4 MG, EVERY 6-8 HOURS AS NEEDED

REACTIONS (12)
  - DIARRHOEA [None]
  - ANXIETY [None]
  - DISTURBANCE IN ATTENTION [None]
  - HEMIPARESIS [None]
  - VISUAL IMPAIRMENT [None]
  - PAIN [None]
  - EMOTIONAL DISORDER [None]
  - CEREBROVASCULAR ACCIDENT [None]
  - GENERAL PHYSICAL HEALTH DETERIORATION [None]
  - VOMITING [None]
  - MEMORY IMPAIRMENT [None]
  - READING DISORDER [None]
